FAERS Safety Report 4539552-X (Version None)
Quarter: 2004Q4

REPORT INFORMATION
  Report Type: 
  Country: None (occurrence: None)
  Receive Date: 20041227
  Receipt Date: 20041227
  Transmission Date: 20050328
  Serious: Yes (Other)
  Sender: FDA-Public Use
  Company Number: None

PATIENT
  Sex: Male
  Weight: 134.7183 kg

DRUGS (2)
  1. TRAZODONE HCL [Suspect]
     Indication: DEPRESSION
     Dosage: 100 MG PO HS
     Route: 048
     Dates: start: 20040805
  2. LEVOTHYROXINE SODIUM [Concomitant]

REACTIONS (1)
  - TIC [None]
